FAERS Safety Report 13821681 (Version 1)
Quarter: 2017Q3

REPORT INFORMATION
  Report Type: Spontaneous
  Country: MY (occurrence: MY)
  Receive Date: 20170801
  Receipt Date: 20170801
  Transmission Date: 20171127
  Serious: Yes (Other)
  Sender: FDA-Public Use
  Company Number: PHHY2017MY111918

PATIENT
  Age: 51 Day
  Sex: Female

DRUGS (1)
  1. MYDRIACYL [Suspect]
     Active Substance: TROPICAMIDE
     Indication: MYDRIASIS
     Route: 031

REACTIONS (2)
  - Apnoea [Recovered/Resolved]
  - Vomiting [Recovered/Resolved]
